FAERS Safety Report 6113886-X (Version None)
Quarter: 2009Q1

REPORT INFORMATION
  Report Type: 
  Country: None (occurrence: None)
  Receive Date: 20090312
  Receipt Date: 20080715
  Transmission Date: 20090719
  Serious: No
  Sender: FDA-Public Use
  Company Number: US-ABBOTT-08P-163-0462731-00

PATIENT
  Age: 37 Year
  Sex: Female

DRUGS (3)
  1. LUPRON DEPOT [Suspect]
     Indication: ENDOMETRIOSIS
     Dosage: 2 DOSES TOTAL
     Route: 030
     Dates: start: 19950101, end: 19950101
  2. LUPRON DEPOT [Suspect]
     Route: 030
     Dates: start: 20050101, end: 20050101
  3. LUPRON DEPOT [Suspect]

REACTIONS (4)
  - FIBROMYALGIA [None]
  - FLUSHING [None]
  - HOT FLUSH [None]
  - PALPITATIONS [None]
